FAERS Safety Report 14813644 (Version 1)
Quarter: 2018Q2

REPORT INFORMATION
  Report Type: Spontaneous
  Country: FR (occurrence: FR)
  Receive Date: 20180426
  Receipt Date: 20180426
  Transmission Date: 20180711
  Serious: Yes (Other)
  Sender: FDA-Public Use
  Company Number: FR-MERCK KGAA-2046563

PATIENT
  Sex: Female

DRUGS (1)
  1. NOVOTHYROX [Suspect]
     Active Substance: LEVOTHYROXINE SODIUM
     Indication: PRODUCT USED FOR UNKNOWN INDICATION
     Dates: end: 201708

REACTIONS (20)
  - Loss of libido [None]
  - Mood swings [None]
  - Fatigue [None]
  - Depression [None]
  - Neck pain [Recovering/Resolving]
  - Malaise [None]
  - Speech disorder [Recovering/Resolving]
  - Anger [Recovering/Resolving]
  - Amnesia [Recovering/Resolving]
  - Loss of consciousness [Recovering/Resolving]
  - Asthenia [Recovering/Resolving]
  - Insomnia [None]
  - Headache [None]
  - Dizziness [Recovering/Resolving]
  - Crying [None]
  - Disturbance in attention [None]
  - Aggression [Recovering/Resolving]
  - Presyncope [None]
  - Impaired work ability [None]
  - Muscle spasms [None]
